FAERS Safety Report 8532834-6 (Version None)
Quarter: 2012Q3

REPORT INFORMATION
  Report Type: 
  Country: None (occurrence: None)
  Receive Date: 20120705
  Receipt Date: 20120627
  Transmission Date: 20120928
  Serious: Yes (Other)
  Sender: FDA-Public Use
  Company Number: 2012032745

PATIENT
  Age: 78 Year
  Sex: Female

DRUGS (1)
  1. PRIVIGEN [Suspect]
     Dosage: 55 GM INTRAVENOUS (NOT OTHERWISE SPECIFIED))
     Route: 042

REACTIONS (4)
  - ASTHENIA [None]
  - INTERNATIONAL NORMALISED RATIO INCREASED [None]
  - HYPERSENSITIVITY [None]
  - HEADACHE [None]
